FAERS Safety Report 4587509-5 (Version None)
Quarter: 2005Q1

REPORT INFORMATION
  Report Type: 
  Country: None (occurrence: None)
  Receive Date: 20050125
  Receipt Date: 20040913
  Transmission Date: 20050727
  Serious: No
  Sender: FDA-Public Use
  Company Number: USA040876996

PATIENT
  Age: 80 Year
  Sex: Female

DRUGS (2)
  1. FORTEO [Suspect]
     Indication: OSTEOPOROSIS
     Dosage: 20 UG/ 1 DAY
     Dates: start: 20030814, end: 20040828
  2. ZOCOR [Concomitant]

REACTIONS (4)
  - EYE DISCHARGE [None]
  - EYE PRURITUS [None]
  - EYELID OEDEMA [None]
  - OCULAR HYPERAEMIA [None]
